FAERS Safety Report 9600074 (Version 1)
Quarter: 2013Q4

REPORT INFORMATION
  Report Type: Spontaneous
  Country: US (occurrence: US)
  Receive Date: 20131004
  Receipt Date: 20131004
  Transmission Date: 20140711
  Serious: No
  Sender: FDA-Public Use
  Company Number: US-AMGEN-USASP2013032344

PATIENT
  Age: 58 Year
  Sex: Female
  Weight: 83.45 kg

DRUGS (7)
  1. ENBREL [Suspect]
     Indication: PRODUCT USED FOR UNKNOWN INDICATION
     Dosage: 50 MG, QWK
     Route: 058
     Dates: end: 20130501
  2. SULFASALAZINE [Concomitant]
     Dosage: UNK
  3. PREDNISONE [Concomitant]
     Dosage: UNK
  4. BENADRYL                           /00000402/ [Concomitant]
     Dosage: 25 MG, UNK
  5. NAPROXEN [Concomitant]
     Dosage: UNK
  6. ZEGERID                            /00661201/ [Concomitant]
     Dosage: 40-1100
  7. TRAMADOL                           /00599202/ [Concomitant]
     Dosage: 50 MG, UNK

REACTIONS (1)
  - Drug ineffective [Unknown]
